FAERS Safety Report 24356987 (Version 1)
Quarter: 2024Q3

REPORT INFORMATION
  Report Type: Spontaneous
  Country: PT (occurrence: PT)
  Receive Date: 20240924
  Receipt Date: 20240924
  Transmission Date: 20241017
  Serious: Yes (Hospitalization, Other)
  Sender: MACLEODS
  Company Number: PT-MACLEODS PHARMA-MAC2024049437

PATIENT

DRUGS (2)
  1. ATORVASTATIN [Suspect]
     Active Substance: ATORVASTATIN
     Indication: Dyslipidaemia
     Route: 065
  2. METFORMIN [Concomitant]
     Active Substance: METFORMIN HYDROCHLORIDE
     Indication: Type 2 diabetes mellitus
     Route: 065

REACTIONS (4)
  - Dysphagia [Recovered/Resolved]
  - Condition aggravated [Recovered/Resolved]
  - Immune-mediated myositis [Recovered/Resolved]
  - Rhabdomyolysis [Recovered/Resolved]
